FAERS Safety Report 5988986-5 (Version None)
Quarter: 2008Q4

REPORT INFORMATION
  Report Type: 
  Country: None (occurrence: None)
  Receive Date: 20081210
  Receipt Date: 20081209
  Transmission Date: 20090506
  Serious: Yes (Death)
  Sender: FDA-Public Use
  Company Number: A0757043A

PATIENT
  Age: 47 Year
  Sex: Male

DRUGS (9)
  1. ZOFRAN [Suspect]
     Indication: PROPHYLAXIS OF NAUSEA AND VOMITING
     Dosage: 2MG EVERY TWO WEEKS
     Route: 042
     Dates: start: 20080501
  2. ZOFRAN [Suspect]
     Dosage: 8MG TWICE PER DAY
     Route: 048
     Dates: start: 20080501
  3. ZOMETA [Concomitant]
  4. CARBOPLATIN [Concomitant]
  5. CHEMOTHERAPY [Concomitant]
  6. DEXAMETHASONE [Concomitant]
  7. BENADRYL [Concomitant]
  8. RANITIDINE [Concomitant]
  9. DOCETAXEL [Concomitant]

REACTIONS (4)
  - DEATH [None]
  - LUNG NEOPLASM MALIGNANT [None]
  - PNEUMONIA [None]
  - PRODUCT QUALITY ISSUE [None]
